FAERS Safety Report 6795009-7 (Version None)
Quarter: 2010Q2

REPORT INFORMATION
  Report Type: 
  Country: None (occurrence: None)
  Receive Date: 20100625
  Receipt Date: 20100611
  Transmission Date: 20101027
  Serious: Yes (Hospitalization)
  Sender: FDA-Public Use
  Company Number: PHHO2010US08939

PATIENT
  Sex: Male
  Weight: 111.86 kg

DRUGS (4)
  1. CGP 57148B T35717+ [Suspect]
     Indication: CHRONIC MYELOID LEUKAEMIA
     Dosage: 200 MG DAILY
     Route: 048
     Dates: start: 20100218, end: 20100316
  2. CGP 57148B T35717+ [Interacting]
     Dosage: 200 MG DAILY
     Route: 048
     Dates: start: 20100326, end: 20100606
  3. CGP 57148B T35717+ [Interacting]
     Dosage: UNK
  4. SIMVASTATIN [Interacting]
     Indication: BLOOD CHOLESTEROL
     Dosage: 40 MG, QD
     Dates: start: 20071211, end: 20100316

REACTIONS (16)
  - ASTHENIA [None]
  - BREATH SOUNDS ABNORMAL [None]
  - CARDIAC FAILURE CONGESTIVE [None]
  - CONDITION AGGRAVATED [None]
  - DRUG INTERACTION [None]
  - DYSPNOEA [None]
  - FAECES DISCOLOURED [None]
  - GAIT DISTURBANCE [None]
  - GASTRITIS EROSIVE [None]
  - LUNG INFILTRATION [None]
  - MUSCULAR WEAKNESS [None]
  - MYOPATHY [None]
  - OEDEMA PERIPHERAL [None]
  - OPEN WOUND [None]
  - PLEURAL EFFUSION [None]
  - PULMONARY CONGESTION [None]
